FAERS Safety Report 8648879 (Version 2)
Quarter: 2012Q4

REPORT INFORMATION
  Report Type: 
  Country: IT (occurrence: IT)
  Receive Date: 20120704
  Receipt Date: 20120907
  Transmission Date: 20130627
  Serious: Yes (Death, Other)
  Sender: FDA-Public Use
  Company Number: IT-BRISTOL-MYERS SQUIBB COMPANY-16728339

PATIENT
  Age: 51 Year
  Sex: Female

DRUGS (22)
  1. ABILIFY TABS 10 MG [Suspect]
     Indication: OBSESSIVE-COMPULSIVE DISORDER
     Route: 048
     Dates: start: 20120430, end: 20120625
  2. ZYPREXA [Suspect]
     Indication: PSYCHIATRIC DECOMPENSATION
     Dosage: and also 10 mg tablets
     Route: 048
     Dates: start: 20120124, end: 20120625
  3. TACHIPIRINA [Concomitant]
  4. AUGMENTIN [Concomitant]
     Dosage: sachets
  5. CLEXANE [Concomitant]
     Dosage: ^3000 VI^
     Route: 058
  6. LENTO-KALIUM [Concomitant]
  7. FERROGRAD [Concomitant]
     Dosage: tablets
  8. ROCEFIN [Concomitant]
     Dosage: vials
     Route: 030
  9. LANSOPRAZOLE [Concomitant]
     Dosage: tablets
  10. AKINETON [Concomitant]
     Dosage: also intramuscular vials
  11. CLOZAPINE [Concomitant]
     Dosage: 1 dF: 25 mg and 100 mg tablets
  12. NOZINAN [Concomitant]
     Dosage: tablets
  13. LENDORMIN [Concomitant]
     Dosage: tablet
  14. CLOPIXOL [Concomitant]
     Dosage: 1df: 10 mg and 25 mg tablets
  15. SEROQUEL [Concomitant]
     Dosage: tablet
  16. SOLIAN [Concomitant]
     Dosage: tablet
  17. SEREUPIN [Concomitant]
     Dosage: tablet
  18. DALMADORM [Concomitant]
     Dosage: CPS
  19. VALIUM [Concomitant]
     Dosage: Drops and intramuscular vials
  20. ANAFRANIL [Concomitant]
     Dosage: in drip
     Route: 042
  21. MODITEN [Concomitant]
     Route: 030
  22. SERENASE [Concomitant]
     Dosage: in drip
     Route: 042

REACTIONS (2)
  - Sudden death [Fatal]
  - Pyrexia [Unknown]
